FAERS Safety Report 4942804-2 (Version None)
Quarter: 2006Q1

REPORT INFORMATION
  Report Type: 
  Country: None (occurrence: None)
  Receive Date: 20060314
  Receipt Date: 20051222
  Transmission Date: 20060701
  Serious: Yes (Death, Life-Threatening, Hospitalization)
  Sender: FDA-Public Use
  Company Number: DE-BRISTOL-MYERS SQUIBB COMPANY-13227889

PATIENT
  Age: 60 Year
  Sex: Female
  Weight: 71 kg

DRUGS (8)
  1. TAXOL [Suspect]
     Indication: BREAST CANCER
     Route: 042
     Dates: start: 20051010, end: 20051212
  2. CYCLOPHOSPHAMIDE [Suspect]
     Indication: BREAST CANCER
     Route: 042
     Dates: start: 20050926, end: 20050926
  3. XELODA [Suspect]
     Indication: BREAST CANCER
     Route: 048
     Dates: start: 20051219, end: 20051219
  4. EPIRUBICIN [Suspect]
     Indication: BREAST CANCER
     Route: 042
     Dates: start: 20050926, end: 20050926
  5. NEORECORMON [Concomitant]
     Route: 058
     Dates: start: 20050829
  6. ZOFRAN [Concomitant]
     Route: 048
     Dates: start: 20050829, end: 20051216
  7. AVELOX [Concomitant]
     Route: 048
     Dates: start: 20051212, end: 20051220
  8. AMPHOTERICIN B [Concomitant]
     Dates: start: 20051121

REACTIONS (2)
  - BRONCHOPNEUMONIA [None]
  - PULMONARY FIBROSIS [None]
